FAERS Safety Report 16784561 (Version 1)
Quarter: 2019Q3

REPORT INFORMATION
  Report Type: Spontaneous
  Country: FR (occurrence: FR)
  Receive Date: 20190909
  Receipt Date: 20190909
  Transmission Date: 20191005
  Serious: Yes (Hospitalization)
  Sender: FDA-Public Use
  Company Number: FR-TEVA-2019-FR-1103318

PATIENT
  Age: 53 Year
  Sex: Female
  Weight: 72 kg

DRUGS (2)
  1. AMOXICILLINE [Suspect]
     Active Substance: AMOXICILLIN
     Indication: OTITIS MEDIA ACUTE
     Dosage: 1 GRAM
     Route: 048
     Dates: start: 20190205, end: 20190205
  2. IBUPROFENE [Suspect]
     Active Substance: IBUPROFEN
     Indication: OTITIS MEDIA ACUTE
     Dosage: 1 DOSAGE FORMS
     Route: 048
     Dates: start: 20190205, end: 20190205

REACTIONS (5)
  - Nausea [Recovered/Resolved]
  - Urticaria [Recovered/Resolved]
  - Tremor [Recovered/Resolved]
  - Malaise [Recovered/Resolved]
  - Hypotension [Recovered/Resolved]

NARRATIVE: CASE EVENT DATE: 20190205
